FAERS Safety Report 16923003 (Version 1)
Quarter: 2019Q4

REPORT INFORMATION
  Report Type: Spontaneous
  Country: BO (occurrence: BO)
  Receive Date: 20191016
  Receipt Date: 20191016
  Transmission Date: 20200122
  Serious: Yes (Other)
  Sender: FDA-Public Use
  Company Number: BO-ROCHE-2427742

PATIENT
  Sex: Male

DRUGS (3)
  1. NAB-PACLITAXEL [Concomitant]
     Active Substance: PACLITAXEL
     Indication: NON-SMALL CELL LUNG CANCER
  2. ATEZOLIZUMAB. [Suspect]
     Active Substance: ATEZOLIZUMAB
     Indication: NON-SMALL CELL LUNG CANCER
     Route: 065
  3. CARBOPLATIN. [Concomitant]
     Active Substance: CARBOPLATIN
     Indication: NON-SMALL CELL LUNG CANCER

REACTIONS (26)
  - Odynophagia [Unknown]
  - Ageusia [Unknown]
  - Circadian rhythm sleep disorder [Unknown]
  - Insomnia [Unknown]
  - Deep vein thrombosis [Unknown]
  - Paraesthesia oral [Unknown]
  - Constipation [Unknown]
  - Aphonia [Unknown]
  - Weight decreased [Unknown]
  - Intentional product use issue [Unknown]
  - Off label use [Unknown]
  - Skin lesion [Unknown]
  - Dry skin [Unknown]
  - Oral discomfort [Unknown]
  - Cough [Recovered/Resolved]
  - Stress [Unknown]
  - Hypersensitivity [Unknown]
  - Anxiety [Unknown]
  - Asthenia [Unknown]
  - Alopecia [Unknown]
  - Oral pain [Unknown]
  - Paraesthesia [Unknown]
  - Restlessness [Unknown]
  - Burning sensation mucosal [Unknown]
  - Pharyngeal inflammation [Unknown]
  - Dysuria [Unknown]
